FAERS Safety Report 7489043-1 (Version None)
Quarter: 2011Q2

REPORT INFORMATION
  Report Type: 
  Country: None (occurrence: None)
  Receive Date: 20110518
  Receipt Date: 20110510
  Transmission Date: 20111010
  Serious: Yes (Death, Hospitalization)
  Sender: FDA-Public Use
  Company Number: US-CELGENEUS-163-21880-11051336

PATIENT
  Age: 68 Year
  Sex: Female

DRUGS (13)
  1. ACYCLOVIR [Concomitant]
     Route: 065
  2. ZOLPIDEM [Concomitant]
     Route: 065
  3. LORAZEPAM [Concomitant]
     Route: 065
  4. DOCUSATE [Concomitant]
     Route: 065
  5. OMEPRAZOLE [Concomitant]
     Route: 065
  6. METHADONE HCL [Concomitant]
     Route: 065
  7. SENNA-MINT WAF [Concomitant]
     Route: 065
  8. AZACYTIDINE [Concomitant]
     Route: 065
     Dates: start: 20101001
  9. MORPHINE [Concomitant]
     Route: 065
  10. HYDROCODONE BITARTRATE AND ACETAMINOPHEN [Concomitant]
     Route: 065
  11. PREDNISONE [Concomitant]
     Route: 065
  12. REVLIMID [Suspect]
     Dosage: 5 MILLIGRAM
     Route: 048
     Dates: start: 20091201, end: 20101101
  13. WHOLE BLOOD [Concomitant]
     Route: 051
     Dates: start: 20101101

REACTIONS (3)
  - SUPRAVENTRICULAR TACHYCARDIA [None]
  - ACUTE MYELOID LEUKAEMIA [None]
  - DEATH [None]
